FAERS Safety Report 23398841 (Version 1)
Quarter: 2024Q1

REPORT INFORMATION
  Report Type: Report from Study
  Country: CO (occurrence: CO)
  Receive Date: 20240112
  Receipt Date: 20240112
  Transmission Date: 20240410
  Serious: Yes (Other)
  Sender: FDA-Public Use
  Company Number: CO-ABBVIE-5582967

PATIENT
  Sex: Male
  Weight: 85 kg

DRUGS (5)
  1. SKYRIZI [Suspect]
     Active Substance: RISANKIZUMAB-RZAA
     Indication: Psoriasis
     Dosage: FORM STRENGTH 75 MILLIGRAM
     Route: 058
     Dates: start: 20220211, end: 20230827
  2. EMPAGLIFLOZIN\METFORMIN HYDROCHLORIDE [Concomitant]
     Active Substance: EMPAGLIFLOZIN\METFORMIN HYDROCHLORIDE
     Indication: Diabetes mellitus
     Dosage: DAILY DOSE?START DATE TEXT: BEFORE SKYRIZI
  3. Rosuvastatine/ezetimibe [Concomitant]
     Indication: Blood triglycerides
     Dosage: DAILY?40 NR UNITS?START DATE TEXT: BEFORE SKYRIZI
  4. LOSARTAN [Concomitant]
     Active Substance: LOSARTAN
     Indication: Hypertension
     Dosage: START DATE TEXT: BEFORE SKYRIZI
  5. AMLODIPINE\HYDROCHLOROTHIAZIDE\VALSARTAN [Concomitant]
     Active Substance: AMLODIPINE\HYDROCHLOROTHIAZIDE\VALSARTAN
     Indication: Hypertension
     Dosage: START DATE TEXT: BEFORE SKYRIZI

REACTIONS (1)
  - Limb mass [Recovering/Resolving]

NARRATIVE: CASE EVENT DATE: 20230101
